FAERS Safety Report 12387242 (Version 2)
Quarter: 2016Q2

REPORT INFORMATION
  Report Type: Report from Study
  Country: TH (occurrence: TH)
  Receive Date: 20160519
  Receipt Date: 20160614
  Transmission Date: 20160815
  Serious: Yes (Hospitalization, Other)
  Sender: FDA-Public Use
  Company Number: TH-ASTRAZENECA-2016SE42671

PATIENT
  Age: 31410 Day
  Sex: Female
  Weight: 37 kg

DRUGS (17)
  1. PLETAAL [Concomitant]
     Active Substance: CILOSTAZOL
     Route: 048
     Dates: start: 2014, end: 20151230
  2. GLUCOPHAGE [Concomitant]
     Active Substance: METFORMIN HYDROCHLORIDE
     Route: 048
     Dates: start: 2014
  3. ENCEPHABOL [Concomitant]
     Active Substance: PYRITINOL HYDROCHLORIDE
     Route: 048
     Dates: start: 2014, end: 20151230
  4. KCL ELIXER [Concomitant]
     Route: 048
     Dates: start: 20160115
  5. TAGRISSO [Suspect]
     Active Substance: OSIMERTINIB
     Indication: NON-SMALL CELL LUNG CANCER
     Route: 048
     Dates: start: 20151230, end: 20160419
  6. LOSARTAN. [Concomitant]
     Active Substance: LOSARTAN
     Route: 048
     Dates: start: 20160108
  7. TAZOBACTUM [Concomitant]
     Active Substance: TAZOBACTAM
     Route: 042
     Dates: start: 20160422, end: 20160429
  8. TAGRISSO [Suspect]
     Active Substance: OSIMERTINIB
     Indication: NON-SMALL CELL LUNG CANCER
     Route: 048
     Dates: start: 20160426
  9. DIAMICRON [Concomitant]
     Active Substance: GLICLAZIDE
     Route: 048
     Dates: start: 2014, end: 20151230
  10. VITAMIN D [Concomitant]
     Active Substance: CHOLECALCIFEROL
     Dosage: 20000 IU WEEKLYS
     Route: 048
     Dates: start: 2014
  11. HYZARR [Concomitant]
     Route: 048
     Dates: start: 2014
  12. PLASIL [Concomitant]
     Active Substance: METOCLOPRAMIDE HYDROCHLORIDE
     Dosage: AS REQUIRED
     Route: 048
     Dates: start: 20151230
  13. CEFTRIAXONE. [Concomitant]
     Active Substance: CEFTRIAXONE
     Route: 042
     Dates: start: 20160419, end: 20160422
  14. ARICEPT EVESS [Concomitant]
     Route: 048
     Dates: start: 2014
  15. INSULIN [Concomitant]
     Active Substance: INSULIN NOS
     Route: 058
     Dates: start: 20160420
  16. IMODIUM [Concomitant]
     Active Substance: LOPERAMIDE HYDROCHLORIDE
     Dosage: AS REQUIRED
     Route: 048
     Dates: start: 20151230
  17. HYDROCHLORTHIAZID [Concomitant]
     Active Substance: HYDROCHLOROTHIAZIDE
     Route: 048
     Dates: start: 20160108

REACTIONS (2)
  - Diabetic ketoacidosis [Recovered/Resolved]
  - Tracheobronchitis [Recovered/Resolved]

NARRATIVE: CASE EVENT DATE: 20160419
